FAERS Safety Report 5730277-1 (Version None)
Quarter: 2008Q2

REPORT INFORMATION
  Report Type: 
  Country: None (occurrence: None)
  Receive Date: 20080505
  Receipt Date: 20080505
  Transmission Date: 20081010
  Serious: No
  Sender: FDA-Public Use
  Company Number: None

PATIENT
  Sex: Female
  Weight: 106.1417 kg

DRUGS (1)
  1. DIGITEK .25 MG BERT 1000@ [Suspect]
     Indication: CARDIAC DISORDER
     Dosage: 1 TABLET ONCE DAY PO
     Route: 048
     Dates: start: 20010101

REACTIONS (14)
  - ASTHENIA [None]
  - DIZZINESS [None]
  - DRY EYE [None]
  - FALL [None]
  - FATIGUE [None]
  - GAIT DISTURBANCE [None]
  - IMPAIRED DRIVING ABILITY [None]
  - INFLUENZA [None]
  - MALAISE [None]
  - NAUSEA [None]
  - NO THERAPEUTIC RESPONSE [None]
  - PHARMACEUTICAL PRODUCT COMPLAINT [None]
  - PHOTOPHOBIA [None]
  - VENTRICULAR EXTRASYSTOLES [None]
